FAERS Safety Report 8876147 (Version 1)
Quarter: 2012Q4

REPORT INFORMATION
  Report Type: 
  Country: US (occurrence: US)
  Receive Date: 20121023
  Receipt Date: 20121023
  Transmission Date: 20130627
  Serious: Yes (Hospitalization, Other)
  Sender: FDA-Public Use
  Company Number: US-TARO-2012P1061029

PATIENT
  Age: 80 Year
  Sex: Male

DRUGS (2)
  1. AMIODARONE [Suspect]
     Indication: ATRIAL FIBRILLATION
  2. WARFARIN [Concomitant]

REACTIONS (3)
  - Factor V inhibition [Recovered/Resolved]
  - International normalised ratio increased [Recovered/Resolved]
  - Coagulopathy [Recovered/Resolved]
